FAERS Safety Report 18928362 (Version 2)
Quarter: 2021Q2

REPORT INFORMATION
  Report Type: Spontaneous
  Country: US (occurrence: US)
  Receive Date: 20210223
  Receipt Date: 20210413
  Transmission Date: 20210717
  Serious: Yes (Other)
  Sender: FDA-Public Use
  Company Number: US-ASTRAZENECA-2021A064773

PATIENT
  Age: 30103 Day
  Sex: Male
  Weight: 79.4 kg

DRUGS (6)
  1. BEVESPI AEROSPHERE [Suspect]
     Active Substance: FORMOTEROL FUMARATE\GLYCOPYRROLATE
     Indication: CHRONIC OBSTRUCTIVE PULMONARY DISEASE
     Dosage: 9/4.8MCG 1 PUFF TWICE DAILY
     Route: 055
     Dates: start: 202001
  2. PRESERVISION 2 AREDS [Concomitant]
     Indication: CATARACT
     Route: 048
  3. FLAX SEED [Concomitant]
     Active Substance: FLAX SEED
     Indication: BLOOD CHOLESTEROL
     Dosage: 700/1400MG FOR A FEW YEARS, TWO TIMES A DAY
  4. IBUPROFEN. [Concomitant]
     Active Substance: IBUPROFEN
     Indication: ARTHRALGIA
  5. ALBUTEROL. [Concomitant]
     Active Substance: ALBUTEROL
     Indication: ASTHMA
     Dosage: 2.5MG AS REQUIRED
     Route: 055
  6. ALBUTEROL. [Concomitant]
     Active Substance: ALBUTEROL
     Indication: ASTHMA
     Dosage: AS REQUIRED
     Route: 055

REACTIONS (14)
  - Malignant polyp [Recovered/Resolved]
  - Wrong technique in product usage process [Unknown]
  - Incorrect dose administered by device [Recovered/Resolved]
  - Device issue [Recovered/Resolved]
  - Chest discomfort [Recovering/Resolving]
  - Arthralgia [Not Recovered/Not Resolved]
  - Product dose omission issue [Not Recovered/Not Resolved]
  - Asthma [Recovered/Resolved]
  - Leukaemia [Not Recovered/Not Resolved]
  - Muscle strain [Not Recovered/Not Resolved]
  - Colon cancer [Not Recovered/Not Resolved]
  - Blood cholesterol increased [Unknown]
  - Intentional device misuse [Recovered/Resolved]
  - Device delivery system issue [Unknown]

NARRATIVE: CASE EVENT DATE: 2020
